FAERS Safety Report 13229711 (Version 3)
Quarter: 2017Q2

REPORT INFORMATION
  Report Type: Report from Study
  Country: US (occurrence: US)
  Receive Date: 20170214
  Receipt Date: 20170519
  Transmission Date: 20170830
  Serious: Yes (Other)
  Sender: FDA-Public Use
  Company Number: PHHO2017US002851

PATIENT
  Age: 62 Year
  Sex: Female
  Weight: 60.77 kg

DRUGS (2)
  1. PREDNISONE. [Suspect]
     Active Substance: PREDNISONE
     Indication: ACUTE SINUSITIS
     Dosage: 40 MG, UNK
     Route: 065
     Dates: start: 20170112, end: 20170117
  2. QAW039A [Suspect]
     Active Substance: FEVIPIPRANT
     Indication: ASTHMA
     Dosage: 450 MG, QD
     Route: 048
     Dates: start: 20160720

REACTIONS (6)
  - Blood glucose increased [None]
  - Acute sinusitis [None]
  - Myalgia [None]
  - Pneumonia pseudomonal [Recovering/Resolving]
  - Asthma [None]
  - Pneumonia [None]

NARRATIVE: CASE EVENT DATE: 20170119
